FAERS Safety Report 22154333 (Version 2)
Quarter: 2023Q2

REPORT INFORMATION
  Report Type: Report from Study
  Country: JP (occurrence: None)
  Receive Date: 20230330
  Receipt Date: 20230619
  Transmission Date: 20230721
  Serious: Yes (Other)
  Sender: FDA-Public Use
  Company Number: JP-ROCHE-3318037

PATIENT
  Age: 80 Year
  Sex: Female

DRUGS (32)
  1. PLACEBO [Suspect]
     Active Substance: UNSPECIFIED INGREDIENT
     Indication: Diffuse large B-cell lymphoma
     Route: 048
     Dates: start: 20160804, end: 20161118
  2. PLACEBO [Suspect]
     Active Substance: UNSPECIFIED INGREDIENT
     Route: 048
     Dates: start: 20161129, end: 20161206
  3. RITUXIMAB [Suspect]
     Active Substance: RITUXIMAB
     Indication: Diffuse large B-cell lymphoma
     Route: 041
     Dates: start: 20160804, end: 20161118
  4. RITUXIMAB [Suspect]
     Active Substance: RITUXIMAB
     Route: 041
     Dates: start: 20180410, end: 20180525
  5. RITUXIMAB [Suspect]
     Active Substance: RITUXIMAB
     Route: 041
     Dates: start: 20191001, end: 20191212
  6. PREDNISONE [Suspect]
     Active Substance: PREDNISONE
     Indication: Diffuse large B-cell lymphoma
     Route: 048
     Dates: start: 20160804, end: 20161118
  7. DOXORUBICIN [Suspect]
     Active Substance: DOXORUBICIN
     Indication: Diffuse large B-cell lymphoma
     Route: 042
     Dates: start: 20160804, end: 20161118
  8. VINCRISTINE [Suspect]
     Active Substance: VINCRISTINE
     Indication: Diffuse large B-cell lymphoma
     Route: 042
     Dates: start: 20160804, end: 20161118
  9. CYCLOPHOSPHAMIDE [Suspect]
     Active Substance: CYCLOPHOSPHAMIDE
     Indication: Diffuse large B-cell lymphoma
     Route: 042
     Dates: start: 20160804, end: 20161118
  10. CYCLOPHOSPHAMIDE [Suspect]
     Active Substance: CYCLOPHOSPHAMIDE
     Route: 042
     Dates: start: 20180410, end: 20180525
  11. CYTARABINE [Concomitant]
     Active Substance: CYTARABINE
  12. DEXAMETHASONE [Concomitant]
     Active Substance: DEXAMETHASONE
  13. ETOPOSIDE [Concomitant]
     Active Substance: ETOPOSIDE
  14. BENDAMUSTINE [Concomitant]
     Active Substance: BENDAMUSTINE
  15. ROSUVASTATIN CALCIUM [Concomitant]
     Active Substance: ROSUVASTATIN CALCIUM
  16. AMLODIPINE BESYLATE [Concomitant]
     Active Substance: AMLODIPINE BESYLATE
  17. BUTYRIC ACID [Concomitant]
     Active Substance: BUTYRIC ACID
  18. MAGNESIUM OXIDE [Concomitant]
     Active Substance: MAGNESIUM OXIDE
  19. FURSULTIAMINE HYDROCHLORIDE [Concomitant]
     Active Substance: FURSULTIAMINE HYDROCHLORIDE
  20. ACETAMINOPHEN [Concomitant]
     Active Substance: ACETAMINOPHEN
  21. TRAMADOL HYDROCHLORIDE [Concomitant]
     Active Substance: TRAMADOL HYDROCHLORIDE
  22. VONOPRAZAN FUMARATE [Concomitant]
     Active Substance: VONOPRAZAN FUMARATE
  23. ZINGIBER OFFICINALE RHIZOME [Concomitant]
  24. ASIAN GINSENG [Concomitant]
     Active Substance: ASIAN GINSENG
  25. ANGELICA ACUTILOBA ROOT [Concomitant]
  26. CITRUS RETICULATA PEEL [Concomitant]
  27. ATRACTYLODES LANCEA RHIZOME [Concomitant]
  28. BUPLEURUM FALCATUM ROOT [Concomitant]
     Active Substance: BUPLEURUM FALCATUM ROOT
  29. ZIZIPHUS JUJUBA VAR. SPINOSA [Concomitant]
  30. ASTRAGALUS SPP. ROOT [Concomitant]
  31. CIMICIFUGA SPP. RHIZOME [Concomitant]
  32. GLYCYRRHIZA SPP. ROOT [Concomitant]

REACTIONS (1)
  - Myelodysplastic syndrome [Not Recovered/Not Resolved]

NARRATIVE: CASE EVENT DATE: 20210919
